FAERS Safety Report 16173573 (Version 2)
Quarter: 2019Q2

REPORT INFORMATION
  Report Type: Report from Study
  Country: US (occurrence: US)
  Receive Date: 20190409
  Receipt Date: 20190412
  Transmission Date: 20190711
  Serious: Yes (Death)
  Sender: FDA-Public Use
  Company Number: US-ROCHE-2300254

PATIENT
  Sex: Female

DRUGS (1)
  1. ESBRIET [Suspect]
     Active Substance: PIRFENIDONE
     Indication: HYPERSENSITIVITY PNEUMONITIS
     Route: 048

REACTIONS (3)
  - Intentional product use issue [Fatal]
  - Off label use [Fatal]
  - Death [Fatal]
